FAERS Safety Report 8242414-8 (Version None)
Quarter: 2012Q1

REPORT INFORMATION
  Report Type: 
  Country: None (occurrence: None)
  Receive Date: 20120329
  Receipt Date: 20120319
  Transmission Date: 20120608
  Serious: Yes (Hospitalization, Other)
  Sender: FDA-Public Use
  Company Number: US-SANOFI-AVENTIS-2012SA019526

PATIENT
  Age: 68 Year
  Sex: Male

DRUGS (2)
  1. PLAVIX [Suspect]
     Route: 048
  2. ESOMEPRAZOLE [Suspect]

REACTIONS (7)
  - WOUND DEHISCENCE [None]
  - CHEST PAIN [None]
  - PNEUMOTHORAX [None]
  - ACTIVITIES OF DAILY LIVING IMPAIRED [None]
  - DYSPNOEA [None]
  - CORONARY ARTERY STENOSIS [None]
  - STAPHYLOCOCCAL INFECTION [None]
